FAERS Safety Report 11404445 (Version 1)
Quarter: 2015Q3

REPORT INFORMATION
  Report Type: Spontaneous
  Country: FR (occurrence: FR)
  Receive Date: 20150821
  Receipt Date: 20150821
  Transmission Date: 20151125
  Serious: Yes (Hospitalization)
  Sender: FDA-Public Use
  Company Number: FR-PFIZER INC-2015271640

PATIENT
  Age: 73 Year
  Sex: Female

DRUGS (3)
  1. TRAMADOL HYDROCHLORIDE. [Suspect]
     Active Substance: TRAMADOL HYDROCHLORIDE
     Dosage: 50 MG, UNK
     Route: 048
     Dates: start: 20150723, end: 20150723
  2. NOCTAMIDE [Suspect]
     Active Substance: LORMETAZEPAM
     Dosage: 1 MG, DAILY
     Route: 048
     Dates: start: 20150718, end: 20150720
  3. AMLOR [Suspect]
     Active Substance: AMLODIPINE BESYLATE
     Dosage: STRENGTH 5 MG
     Route: 048
     Dates: start: 20150721, end: 20150723

REACTIONS (3)
  - Rash maculo-papular [Recovered/Resolved]
  - Conjunctivitis [Recovered/Resolved]
  - Cheilitis [Recovered/Resolved]

NARRATIVE: CASE EVENT DATE: 20150723
